FAERS Safety Report 5759369-8 (Version None)
Quarter: 2008Q2

REPORT INFORMATION
  Report Type: 
  Country: None (occurrence: None)
  Receive Date: 20080605
  Receipt Date: 20080526
  Transmission Date: 20081010
  Serious: Yes (Hospitalization)
  Sender: FDA-Public Use
  Company Number: BR-JNJFOC-20080505947

PATIENT
  Sex: Male
  Weight: 5.78 kg

DRUGS (5)
  1. MAXIFEN [Suspect]
     Indication: PYREXIA
  2. MAXIFEN [Suspect]
     Indication: PAIN
     Dosage: 40 MG (8 DROPS EACH DOSAGE)
  3. FLAGLASS (DIMETICONE) [Concomitant]
     Indication: FLATULENCE
  4. ADITIL [Concomitant]
     Indication: VITAMIN SUPPLEMENTATION
  5. VIBRAL [Concomitant]
     Indication: COUGH

REACTIONS (4)
  - DRUG TOXICITY [None]
  - DYSPNOEA [None]
  - LISTLESS [None]
  - WRONG DRUG ADMINISTERED [None]
